FAERS Safety Report 11081646 (Version 2)
Quarter: 2015Q2

REPORT INFORMATION
  Report Type: Spontaneous
  Country: US (occurrence: US)
  Receive Date: 20150501
  Receipt Date: 20150508
  Transmission Date: 20150821
  Serious: Yes (Other)
  Sender: FDA-Public Use
  Company Number: US-MYLANLABS-2015M1014323

PATIENT

DRUGS (4)
  1. FONDAPARINUX INJECTION [Suspect]
     Active Substance: FONDAPARINUX
     Indication: PULMONARY HYPERTENSION
     Dosage: 7.5 MG/0.6ML, QD
     Route: 058
     Dates: start: 201202, end: 201504
  2. LEVOTHYROXINE [Concomitant]
     Active Substance: LEVOTHYROXINE
     Indication: HYPOTHYROIDISM
     Dosage: UNK
  3. FONDAPARINUX INJECTION [Suspect]
     Active Substance: FONDAPARINUX
     Indication: OFF LABEL USE
     Dosage: 7.5 MG/0.6ML, QD
     Route: 058
     Dates: start: 20150424
  4. LOVENOX [Suspect]
     Active Substance: ENOXAPARIN SODIUM
     Dosage: 80 MG, BID
     Route: 058
     Dates: start: 20150419, end: 20150420

REACTIONS (3)
  - Abortion spontaneous [Recovered/Resolved]
  - Vaginal haemorrhage [Recovered/Resolved]
  - Exposure during pregnancy [Recovered/Resolved]

NARRATIVE: CASE EVENT DATE: 201504
